FAERS Safety Report 4646670-4 (Version None)
Quarter: 2005Q2

REPORT INFORMATION
  Report Type: 
  Country: None (occurrence: None)
  Receive Date: 20050422
  Receipt Date: 20050422
  Transmission Date: 20051028
  Serious: Yes (Life-Threatening, Hospitalization)
  Sender: FDA-Public Use
  Company Number: None

PATIENT
  Age: 25 Year
  Sex: Female
  Weight: 61.2356 kg

DRUGS (4)
  1. VALDECOXIB [Suspect]
     Indication: NECK PAIN
     Dosage: 20MG BID ORALLY
     Route: 048
     Dates: start: 20051001, end: 20051111
  2. ORTHO-TRICYCLIN LO [Concomitant]
  3. CLARITIN [Concomitant]
  4. FLEXORIL [Concomitant]

REACTIONS (1)
  - PULMONARY EMBOLISM [None]
